FAERS Safety Report 17534637 (Version 1)
Quarter: 2020Q1

REPORT INFORMATION
  Report Type: Spontaneous
  Country: US (occurrence: US)
  Receive Date: 20200312
  Receipt Date: 20200312
  Transmission Date: 20200409
  Serious: No
  Sender: FDA-Public Use
  Company Number: US-GALDERMA-US19047354

PATIENT
  Age: 61 Year
  Sex: Female

DRUGS (7)
  1. GENERIC FOAMING FACIAL CLEANSER [Concomitant]
     Indication: PROPHYLAXIS
     Route: 061
  2. CETAPHIL MOISTURIZING CREAM [Suspect]
     Active Substance: COSMETICS
     Indication: DRY SKIN PROPHYLAXIS
     Route: 061
  3. SYNTHROID 75 MG DAILY [Concomitant]
     Indication: PRODUCT USED FOR UNKNOWN INDICATION
     Dosage: 75 MG
     Route: 065
  4. UNSPECIFIED TONER [Concomitant]
     Indication: PRODUCT USED FOR UNKNOWN INDICATION
     Route: 061
  5. NEUTROGENA PURE AND FREE BABY SUNSCREEN SPF 50 [Concomitant]
     Indication: PRODUCT USED FOR UNKNOWN INDICATION
     Route: 061
  6. TRI-LUMA [Suspect]
     Active Substance: FLUOCINOLONE ACETONIDE\HYDROQUINONE\TRETINOIN
     Indication: CHLOASMA
     Route: 061
     Dates: start: 20190616, end: 20190716
  7. BETA BLOCKERS [Concomitant]
     Active Substance: UNSPECIFIED INGREDIENT
     Indication: PRODUCT USED FOR UNKNOWN INDICATION
     Route: 065

REACTIONS (6)
  - Skin hyperpigmentation [Not Recovered/Not Resolved]
  - Erythema [Unknown]
  - Intentional product misuse [Recovered/Resolved]
  - Dry skin [Unknown]
  - Skin exfoliation [Unknown]
  - Skin wrinkling [Unknown]

NARRATIVE: CASE EVENT DATE: 201906
